FAERS Safety Report 8180364-6 (Version None)
Quarter: 2012Q1

REPORT INFORMATION
  Report Type: 
  Country: None (occurrence: None)
  Receive Date: 20120302
  Receipt Date: 20120229
  Transmission Date: 20120608
  Serious: Yes (Hospitalization)
  Sender: FDA-Public Use
  Company Number: US-PFIZER INC-2012055552

PATIENT
  Sex: Female
  Weight: 67.12 kg

DRUGS (3)
  1. XANAX [Suspect]
     Indication: ANXIETY
     Dosage: 1 MG, 3X/DAY
     Route: 048
  2. XANAX [Suspect]
     Indication: STRESS
  3. XANAX [Suspect]
     Indication: CARDIAC DISORDER

REACTIONS (1)
  - CARDIAC DISORDER [None]
